FAERS Safety Report 22044153 (Version 2)
Quarter: 2023Q1

REPORT INFORMATION
  Report Type: Report from Study
  Country: CA (occurrence: CA)
  Receive Date: 20230228
  Receipt Date: 20230323
  Transmission Date: 20230417
  Serious: Yes (Hospitalization)
  Sender: FDA-Public Use
  Company Number: CA-TAKEDA-2023TUS019445

PATIENT
  Age: 74 Year
  Sex: Female

DRUGS (1)
  1. VEDOLIZUMAB [Suspect]
     Active Substance: VEDOLIZUMAB
     Indication: Crohn^s disease
     Dosage: 300 MILLIGRAM
     Route: 042
     Dates: start: 20201019

REACTIONS (4)
  - International normalised ratio increased [Recovering/Resolving]
  - Gait disturbance [Recovering/Resolving]
  - Poor venous access [Unknown]
  - Blood pressure decreased [Unknown]
